FAERS Safety Report 13349915 (Version 1)
Quarter: 2017Q1

REPORT INFORMATION
  Report Type: Spontaneous
  Country: US (occurrence: US)
  Receive Date: 20170319
  Receipt Date: 20170319
  Transmission Date: 20170429
  Serious: Yes (Other)
  Sender: FDA-Public Use
  Company Number: None

PATIENT
  Age: 47 Year
  Sex: Female
  Weight: 85.5 kg

DRUGS (12)
  1. VITALITY MULTIVITAMIN FOR WOMEN [Concomitant]
  2. TURMERIC [Concomitant]
     Active Substance: TURMERIC
  3. LIOTHYRONINE [Concomitant]
     Active Substance: LIOTHYRONINE
  4. SPIRONOLACTONE. [Concomitant]
     Active Substance: SPIRONOLACTONE
  5. METFORMIN [Concomitant]
     Active Substance: METFORMIN HYDROCHLORIDE
  6. CINNAMON. [Concomitant]
     Active Substance: CINNAMON
  7. SYNTHROID [Concomitant]
     Active Substance: LEVOTHYROXINE SODIUM
  8. VYVANSE [Concomitant]
     Active Substance: LISDEXAMFETAMINE DIMESYLATE
  9. LEVOCETIRIZINE [Suspect]
     Active Substance: LEVOCETIRIZINE
     Indication: PRURITUS
     Dosage: ?          QUANTITY:.5 TABLET(S);?
     Route: 048
  10. VITAMIN D [Concomitant]
     Active Substance: CHOLECALCIFEROL
  11. CHROMIUM PICOLINATE TRIVALENT [Concomitant]
  12. ACIDOPHILUS PEARLS [Concomitant]

REACTIONS (8)
  - Scratch [None]
  - Feeling abnormal [None]
  - Therapy cessation [None]
  - Activities of daily living impaired [None]
  - Contusion [None]
  - Laceration [None]
  - Sleep disorder due to general medical condition, insomnia type [None]
  - Pruritus [None]

NARRATIVE: CASE EVENT DATE: 20170305
